FAERS Safety Report 17486963 (Version 1)
Quarter: 2020Q1

REPORT INFORMATION
  Report Type: Report from Study
  Country: US (occurrence: US)
  Receive Date: 20200303
  Receipt Date: 20200303
  Transmission Date: 20200409
  Serious: Yes (Other)
  Sender: FDA-Public Use
  Company Number: US-BRISTOL-MYERS SQUIBB COMPANY-BMS-2020-016624

PATIENT
  Sex: Female

DRUGS (1)
  1. APIXABAN [Suspect]
     Active Substance: APIXABAN
     Indication: PRODUCT USED FOR UNKNOWN INDICATION
     Dosage: UNK
     Route: 065

REACTIONS (9)
  - Basedow^s disease [Unknown]
  - Hyperlipidaemia [Unknown]
  - Endocrine ophthalmopathy [Unknown]
  - Cardiac failure [Unknown]
  - Hypertension [Unknown]
  - Major depression [Unknown]
  - Acute myeloid leukaemia [Unknown]
  - Cardiomyopathy [Unknown]
  - Type 2 diabetes mellitus [Unknown]
